FAERS Safety Report 5818684-X (Version None)
Quarter: 2008Q3

REPORT INFORMATION
  Report Type: 
  Country: None (occurrence: None)
  Receive Date: 20080717
  Receipt Date: 20080717
  Transmission Date: 20090109
  Serious: Yes (Other)
  Sender: FDA-Public Use
  Company Number: None

PATIENT
  Sex: Female
  Weight: 90.7194 kg

DRUGS (1)
  1. LIPITOR [Suspect]
     Indication: BLOOD CHOLESTEROL INCREASED
     Dosage: 1 TABLET DAILY PO
     Route: 048
     Dates: start: 19980101, end: 20080415

REACTIONS (9)
  - ASTHENIA [None]
  - DEPRESSED MOOD [None]
  - DEPRESSION [None]
  - DRUG TOXICITY [None]
  - FATIGUE [None]
  - MYALGIA [None]
  - PAIN [None]
  - SUICIDAL IDEATION [None]
  - WEIGHT INCREASED [None]
